FAERS Safety Report 24191596 (Version 1)
Quarter: 2024Q3

REPORT INFORMATION
  Report Type: Spontaneous
  Country: US (occurrence: US)
  Receive Date: 20240808
  Receipt Date: 20240808
  Transmission Date: 20241016
  Serious: Yes (Death, Other)
  Sender: AUROBINDO
  Company Number: US-AUROBINDO-AUR-APL-2024-038919

PATIENT
  Age: 36 Year
  Sex: Male

DRUGS (1)
  1. AMPHOTERICIN B [Suspect]
     Active Substance: AMPHOTERICIN B
     Indication: Histoplasmosis disseminated
     Dosage: UNK
     Route: 065

REACTIONS (3)
  - Multiple organ dysfunction syndrome [Fatal]
  - Septic shock [Fatal]
  - Drug ineffective [Fatal]
